FAERS Safety Report 6268830-1 (Version None)
Quarter: 2009Q3

REPORT INFORMATION
  Report Type: 
  Country: None (occurrence: None)
  Receive Date: 20090710
  Receipt Date: 20090710
  Transmission Date: 20100115
  Serious: No
  Sender: FDA-Public Use
  Company Number: None

PATIENT
  Sex: Male
  Weight: 26.1 kg

DRUGS (7)
  1. DEXAMETHASONE [Suspect]
     Indication: ADENOTONSILLECTOMY
     Dosage: 10MG TONGIHT AND IN AM IV
     Route: 042
     Dates: start: 20090623
  2. DEXAMETHASONE [Suspect]
     Indication: SWELLING
     Dosage: 10MG TONGIHT AND IN AM IV
     Route: 042
     Dates: start: 20090623
  3. DEXAMETHASONE [Suspect]
     Indication: ADENOTONSILLECTOMY
     Dosage: 10MG TONGIHT AND IN AM IV
     Route: 042
     Dates: start: 20090624
  4. DEXAMETHASONE [Suspect]
     Indication: SWELLING
     Dosage: 10MG TONGIHT AND IN AM IV
     Route: 042
     Dates: start: 20090624
  5. VERSED [Concomitant]
  6. TYLENOL (CAPLET) [Concomitant]
  7. LORTAB [Concomitant]

REACTIONS (1)
  - VOMITING PROJECTILE [None]
